FAERS Safety Report 4943627-0 (Version None)
Quarter: 2006Q1

REPORT INFORMATION
  Report Type: 
  Country: None (occurrence: None)
  Receive Date: 20060310
  Receipt Date: 20060228
  Transmission Date: 20060701
  Serious: Yes (Death, Hospitalization)
  Sender: FDA-Public Use
  Company Number: B0414146A

PATIENT
  Age: 31 Year
  Sex: Female

DRUGS (4)
  1. FORTAZ [Suspect]
     Dosage: INTRAVENOUS
     Route: 042
  2. CEFCAPENE PIVOXIL HCL (CEFCAPENE PIVOXIL HCL) [Suspect]
  3. CLINDAMYCIN [Suspect]
  4. BETAMIPRON + PANIPENEM (BETAMIPRON + PANIPENEM) [Suspect]

REACTIONS (9)
  - ABDOMINAL DISTENSION [None]
  - ASCITES [None]
  - CLOSTRIDIUM COLITIS [None]
  - GASTROINTESTINAL OEDEMA [None]
  - HYPOTENSION [None]
  - MULTI-ORGAN FAILURE [None]
  - PLEURAL EFFUSION [None]
  - TACHYCARDIA [None]
  - TACHYPNOEA [None]
